FAERS Safety Report 14377851 (Version 2)
Quarter: 2018Q1

REPORT INFORMATION
  Report Type: Spontaneous
  Country: US (occurrence: US)
  Receive Date: 20180111
  Receipt Date: 20180116
  Transmission Date: 20180509
  Serious: No
  Sender: FDA-Public Use
  Company Number: US-BEH-2018086726

PATIENT
  Age: 49 Year
  Sex: Female

DRUGS (6)
  1. COENZYME Q10 [Concomitant]
     Active Substance: UBIDECARENONE
     Route: 065
  2. HIZENTRA [Suspect]
     Active Substance: HUMAN IMMUNOGLOBULIN G
     Dosage: 1 G, UNK
     Route: 058
  3. OXYGEN. [Concomitant]
     Active Substance: OXYGEN
     Route: 065
  4. HIZENTRA [Suspect]
     Active Substance: HUMAN IMMUNOGLOBULIN G
     Indication: IMMUNODEFICIENCY COMMON VARIABLE
     Dosage: 4 G, UNK
     Route: 058
  5. HIZENTRA [Suspect]
     Active Substance: HUMAN IMMUNOGLOBULIN G
     Dosage: 5 G (25 ML), TIW
     Route: 058
     Dates: start: 20170730
  6. BLISTEX                            /00530701/ [Concomitant]
     Route: 065

REACTIONS (8)
  - Sensitivity of teeth [Unknown]
  - Erythema [Unknown]
  - Weight decreased [Unknown]
  - Infusion site erythema [Unknown]
  - Oral pain [Unknown]
  - Injection site nodule [Unknown]
  - Hypersensitivity [Recovering/Resolving]
  - Erythema [Recovering/Resolving]

NARRATIVE: CASE EVENT DATE: 20180109
